FAERS Safety Report 7541633-3 (Version None)
Quarter: 2011Q2

REPORT INFORMATION
  Report Type: 
  Country: None (occurrence: None)
  Receive Date: 20110603
  Receipt Date: 20110509
  Transmission Date: 20111010
  Serious: Yes (Other)
  Sender: FDA-Public Use
  Company Number: 2011MA006537

PATIENT
  Age: 43 Year
  Sex: Female

DRUGS (1)
  1. TRAMADOL HYDROCHLORIDE [Suspect]
     Indication: INTERVERTEBRAL DISC PROTRUSION
     Dosage: 100 MG, PO
     Route: 048

REACTIONS (5)
  - HEADACHE [None]
  - VOMITING [None]
  - DIZZINESS [None]
  - EPIGASTRIC DISCOMFORT [None]
  - NAUSEA [None]
